FAERS Safety Report 14764149 (Version 1)
Quarter: 2018Q2

REPORT INFORMATION
  Report Type: Spontaneous
  Country: US (occurrence: US)
  Receive Date: 20180416
  Receipt Date: 20180416
  Transmission Date: 20180711
  Serious: Yes (Death)
  Sender: FDA-Public Use
  Company Number: US-IMPAX LABORATORIES, INC-2018-IPXL-01144

PATIENT
  Age: 2 Year
  Sex: Female

DRUGS (7)
  1. HYDROCORTISONE. [Suspect]
     Active Substance: HYDROCORTISONE
     Indication: RESUSCITATION
     Dosage: UNK
     Route: 065
  2. ADRENACLICK [Suspect]
     Active Substance: EPINEPHRINE
     Indication: PRODUCT USE IN UNAPPROVED INDICATION
  3. CEFEPIME [Concomitant]
     Active Substance: CEFEPIME HYDROCHLORIDE
     Indication: FEBRILE NEUTROPENIA
     Dosage: UNK
     Route: 065
  4. NAFCILLIN [Concomitant]
     Active Substance: NAFCILLIN\NAFCILLIN SODIUM
     Indication: STENOTROPHOMONAS INFECTION
     Dosage: UNK
     Route: 065
  5. ADRENACLICK [Suspect]
     Active Substance: EPINEPHRINE
     Indication: PULMONARY HAEMORRHAGE
     Dosage: UNK
     Route: 065
  6. TOBRAMYCIN. [Concomitant]
     Active Substance: TOBRAMYCIN
     Indication: PSEUDOMONAS INFECTION
     Dosage: UNK
     Route: 065
  7. CEFTAZIDIME. [Concomitant]
     Active Substance: CEFTAZIDIME
     Indication: STENOTROPHOMONAS INFECTION
     Dosage: UNK
     Route: 065

REACTIONS (2)
  - Pulmonary haemorrhage [Fatal]
  - Drug ineffective for unapproved indication [Fatal]
